FAERS Safety Report 25597934 (Version 1)
Quarter: 2025Q3

REPORT INFORMATION
  Report Type: Spontaneous
  Country: US (occurrence: US)
  Receive Date: 20250723
  Receipt Date: 20250723
  Transmission Date: 20251020
  Serious: Yes (Other)
  Sender: AMGEN
  Company Number: US-AMGEN-USASP2025139092

PATIENT

DRUGS (1)
  1. PREDNISONE [Suspect]
     Active Substance: PREDNISONE
     Indication: Immunosuppressant drug therapy
     Route: 065

REACTIONS (15)
  - Splenic artery aneurysm [Unknown]
  - Cardiac failure acute [Unknown]
  - Sepsis [Unknown]
  - Liver transplant rejection [Unknown]
  - Stillbirth [Unknown]
  - Liver transplant failure [Unknown]
  - Abortion spontaneous [Unknown]
  - Ectopic pregnancy [Unknown]
  - Pulmonary oedema [Unknown]
  - Pre-eclampsia [Unknown]
  - Caesarean section [Unknown]
  - Premature labour [Unknown]
  - Maternal exposure during pregnancy [Unknown]
  - Abortion induced [Unknown]
  - Premature rupture of membranes [Unknown]
